FAERS Safety Report 11123122 (Version 1)
Quarter: 2015Q2

REPORT INFORMATION
  Report Type: Spontaneous
  Country: US (occurrence: US)
  Receive Date: 20150519
  Receipt Date: 20150519
  Transmission Date: 20150821
  Serious: No
  Sender: FDA-Public Use
  Company Number: US-ABBVIE-15P-163-1358456-00

PATIENT
  Sex: Female

DRUGS (1)
  1. PROGESTERONE. [Suspect]
     Active Substance: PROGESTERONE
     Indication: PRODUCT USED FOR UNKNOWN INDICATION
     Dosage: AT BEDTIME
     Route: 065
     Dates: start: 201502

REACTIONS (3)
  - Sleep disorder [Unknown]
  - Drug ineffective [Unknown]
  - Insomnia [Unknown]
